FAERS Safety Report 6914616-1 (Version None)
Quarter: 2010Q3

REPORT INFORMATION
  Report Type: 
  Country: None (occurrence: None)
  Receive Date: 20100804
  Receipt Date: 20100726
  Transmission Date: 20110219
  Serious: Yes (Other)
  Sender: FDA-Public Use
  Company Number: 2010SP038998

PATIENT
  Age: 80 Year
  Sex: Male
  Weight: 72.5755 kg

DRUGS (3)
  1. MIRALAX [Suspect]
     Indication: CONSTIPATION
     Dosage: 8.5 GM; QD; PO
     Route: 048
     Dates: start: 20100201
  2. MIRALAX [Suspect]
  3. BLOOD PRESSURE [Concomitant]

REACTIONS (2)
  - FAECES DISCOLOURED [None]
  - NAUSEA [None]
